FAERS Safety Report 6395683-3 (Version None)
Quarter: 2009Q4

REPORT INFORMATION
  Report Type: 
  Country: None (occurrence: None)
  Receive Date: 20091009
  Receipt Date: 20090928
  Transmission Date: 20100525
  Serious: Yes (Hospitalization)
  Sender: FDA-Public Use
  Company Number: PHHY2009TR41522

PATIENT

DRUGS (1)
  1. ACLASTA [Suspect]
     Dosage: UNK

REACTIONS (3)
  - CARDIAC DISORDER [None]
  - HERPES ZOSTER [None]
  - PYREXIA [None]
